FAERS Safety Report 24570874 (Version 1)
Quarter: 2024Q4

REPORT INFORMATION
  Report Type: Spontaneous
  Country: JP (occurrence: JP)
  Receive Date: 20241101
  Receipt Date: 20241101
  Transmission Date: 20250115
  Serious: Yes (Other)
  Sender: AMGEN
  Company Number: JP-DSJP-DS-2024-105822-

PATIENT
  Age: 76 Year
  Sex: Male

DRUGS (4)
  1. DENOSUMAB [Suspect]
     Active Substance: DENOSUMAB
     Indication: Osteoporosis
     Dosage: UNK
     Route: 065
  2. ELCATONIN [Concomitant]
     Active Substance: ELCATONIN
     Indication: Hyperparathyroidism primary
     Dosage: UNK
     Route: 030
  3. EVOCALCET [Concomitant]
     Active Substance: EVOCALCET
     Indication: Hyperparathyroidism primary
     Dosage: UNK
     Route: 048
  4. METHIMAZOLE [Concomitant]
     Active Substance: METHIMAZOLE
     Indication: Graves^ disease
     Dosage: UNK
     Route: 065

REACTIONS (1)
  - Hungry bone syndrome [Unknown]
